FAERS Safety Report 25190090 (Version 1)
Quarter: 2025Q2

REPORT INFORMATION
  Report Type: Spontaneous
  Country: FR (occurrence: FR)
  Receive Date: 20250411
  Receipt Date: 20250411
  Transmission Date: 20250717
  Serious: Yes (Other)
  Sender: VERTEX
  Company Number: None

PATIENT
  Age: 6 Year
  Sex: Female
  Weight: 18 kg

DRUGS (2)
  1. ELEXACAFTOR\IVACAFTOR\TEZACAFTOR [Suspect]
     Active Substance: ELEXACAFTOR\IVACAFTOR\TEZACAFTOR
     Indication: Cystic fibrosis
     Dosage: TWO TABS, 37.5MG IVA/ 25MG TEZA / 50MG ELEXA
     Route: 048
     Dates: start: 20230911, end: 20240116
  2. ELEXACAFTOR\IVACAFTOR\TEZACAFTOR [Suspect]
     Active Substance: ELEXACAFTOR\IVACAFTOR\TEZACAFTOR
     Dosage: ONE TAB, 37.5MG IVA/ 25MG TEZA / 50MG ELEXA)
     Route: 048
     Dates: start: 20240116

REACTIONS (8)
  - Psychomotor hyperactivity [Recovered/Resolved]
  - Sleep disorder [Recovered/Resolved]
  - Nightmare [Recovered/Resolved]
  - Irritability [Recovered/Resolved]
  - Initial insomnia [Recovered/Resolved]
  - Nervousness [Recovered/Resolved]
  - Impulsive behaviour [Recovered/Resolved]
  - Hepatic cytolysis [Recovered/Resolved]

NARRATIVE: CASE EVENT DATE: 20231012
